FAERS Safety Report 9038567 (Version 1)
Quarter: 2013Q1

REPORT INFORMATION
  Report Type: Report from Study
  Country: FR (occurrence: FR)
  Receive Date: 20130129
  Receipt Date: 20130129
  Transmission Date: 20140127
  Serious: Yes (Hospitalization)
  Sender: FDA-Public Use
  Company Number: FR-INCYTE CORPORATION-2013IN000160

PATIENT
  Sex: Female

DRUGS (1)
  1. INC424 [Suspect]
     Indication: MYELOFIBROSIS
     Dosage: UNK
     Route: 048
     Dates: start: 20120713

REACTIONS (3)
  - Cardiopulmonary failure [Unknown]
  - Enterocolitis infectious [Unknown]
  - Pneumonia [Unknown]
